FAERS Safety Report 10475280 (Version 1)
Quarter: 2014Q3

REPORT INFORMATION
  Report Type: Report from Study
  Country: US (occurrence: US)
  Receive Date: 20140925
  Receipt Date: 20140925
  Transmission Date: 20150326
  Serious: Yes (Other)
  Sender: FDA-Public Use
  Company Number: PHEH2014US018801

PATIENT
  Age: 64 Year

DRUGS (2)
  1. FENTANYL. [Concomitant]
     Active Substance: FENTANYL
     Indication: CARCINOID TUMOUR
     Dosage: UNK UKN, UNK
  2. SANDOSTATIN LAR DEPOT [Suspect]
     Active Substance: OCTREOTIDE ACETATE
     Indication: CARCINOID TUMOUR
     Dosage: 30 MG, UNK

REACTIONS (16)
  - Malignant neoplasm progression [Unknown]
  - Injury [Unknown]
  - Back pain [Unknown]
  - Glucose tolerance impaired [Unknown]
  - Rotator cuff syndrome [Unknown]
  - Fatigue [Unknown]
  - Urinary retention [Unknown]
  - Arthralgia [Unknown]
  - Insomnia [Unknown]
  - Pain [Unknown]
  - Hepatic lesion [Unknown]
  - Neuralgia [Unknown]
  - Diarrhoea [Unknown]
  - Palpitations [Unknown]
  - Musculoskeletal pain [Unknown]
  - Nausea [Unknown]

NARRATIVE: CASE EVENT DATE: 20130624
